FAERS Safety Report 8213967-0 (Version None)
Quarter: 2012Q1

REPORT INFORMATION
  Report Type: 
  Country: None (occurrence: None)
  Receive Date: 20120316
  Receipt Date: 20120312
  Transmission Date: 20120608
  Serious: Yes (Other)
  Sender: FDA-Public Use
  Company Number: US-PFIZER INC-2012023149

PATIENT
  Sex: Female
  Weight: 57 kg

DRUGS (20)
  1. ESTRING [Suspect]
     Indication: ATROPHIC VULVOVAGINITIS
     Dosage: UNK, EVERY 90 DAYS
     Route: 067
  2. BUMETANIDE [Concomitant]
     Dosage: 0.5 MG, UNK
  3. ZOLOFT [Concomitant]
     Dosage: 50 MG, 1X/DAY
  4. ACETYLSALICYLIC ACID [Concomitant]
     Dosage: 320 MG, 1X/DAY
  5. CITRUCEL [Concomitant]
     Dosage: UNK, 2XDAY
  6. NAMENDA [Concomitant]
     Dosage: 10 MG, 2X/DAY
  7. CHONDROITIN/GLUCOSAMINE [Concomitant]
     Dosage: UNK, 2XDAY
  8. ACIDOPHILUS [Concomitant]
     Dosage: UNK
  9. AZELASTINE [Concomitant]
     Dosage: UNK, 2XDAY
  10. ESTRING [Suspect]
     Indication: VAGINAL PROLAPSE
  11. MULTI-VITAMINS [Concomitant]
     Dosage: UNK
  12. EXELON [Concomitant]
     Dosage: 9.5 MG, 1X/DAY
  13. PRILOSEC [Concomitant]
     Dosage: 20 MG, 1X/DAY
  14. PRAVASTATIN [Concomitant]
     Dosage: 10 MG, 1X/DAY
  15. VITAMIN D [Concomitant]
     Dosage: UNK
  16. ESTRING [Suspect]
     Indication: SENSORY DISTURBANCE
  17. LOSARTAN [Concomitant]
     Dosage: 50 MG, 1X/DAY
  18. ESTRING [Suspect]
     Indication: BLADDER PROLAPSE
  19. CALCIUM [Concomitant]
     Dosage: 500 MG, 1X/DAY
  20. FISH OIL [Concomitant]
     Dosage: 1000 MG, 2X/DAY

REACTIONS (2)
  - VAGINAL EROSION [None]
  - VAGINAL HAEMORRHAGE [None]
